FAERS Safety Report 23587043 (Version 1)
Quarter: 2024Q1

REPORT INFORMATION
  Report Type: Spontaneous
  Country: US (occurrence: None)
  Receive Date: 20240301
  Receipt Date: 20240301
  Transmission Date: 20240410
  Serious: Yes (Hospitalization)
  Sender: FDA-Public Use
  Company Number: 2024A047796

PATIENT
  Age: 682 Month
  Sex: Female
  Weight: 127 kg

DRUGS (34)
  1. TEZSPIRE [Suspect]
     Active Substance: TEZEPELUMAB-EKKO
     Indication: Asthma
  2. PULMICORT TURBUHALER [Suspect]
     Active Substance: BUDESONIDE
     Route: 055
  3. DUPIXENT [Suspect]
     Active Substance: DUPILUMAB
     Indication: Asthma
     Dosage: 300 MG, EVERY OTHER WEEK
     Route: 058
     Dates: start: 202106
  4. PULMICORT TURBUHALER [Concomitant]
     Active Substance: BUDESONIDE
     Route: 055
  5. VITAMIN E [Concomitant]
     Active Substance: .ALPHA.-TOCOPHEROL
  6. OMEGA-3-ACID ETHYL ESTERS [Concomitant]
     Active Substance: OMEGA-3-ACID ETHYL ESTERS
  7. ASCORBIC ACID [Concomitant]
     Active Substance: ASCORBIC ACID
  8. CUPRIC OXIDE [Concomitant]
     Active Substance: CUPRIC OXIDE
  9. .ALPHA.-TOCOPHEROL ACETATE, DL- [Concomitant]
     Active Substance: .ALPHA.-TOCOPHEROL ACETATE, DL-
  10. ZEAXANTHIN [Concomitant]
     Active Substance: ZEAXANTHIN
  11. ZINC OXIDE [Concomitant]
     Active Substance: ZINC OXIDE
  12. VITAMIN C [Concomitant]
     Active Substance: ASCORBIC ACID
  13. SAMBUCUS NIGRA [Concomitant]
     Active Substance: HOMEOPATHICS
  14. VITAMIN D3 [Concomitant]
     Active Substance: CHOLECALCIFEROL
  15. LORAZEPAM [Concomitant]
     Active Substance: LORAZEPAM
  16. LEVOSALBUTAMOL TARTRATE [Concomitant]
  17. LEVALBUTEROL TARTRATE [Concomitant]
     Active Substance: LEVALBUTEROL TARTRATE
  18. LEVALBUTEROL [Concomitant]
     Active Substance: LEVALBUTEROL
  19. SOLU-CORTEF [Concomitant]
     Active Substance: HYDROCORTISONE SODIUM SUCCINATE
  20. FUROSEMIDE [Concomitant]
     Active Substance: FUROSEMIDE
  21. GABAPENTIN [Concomitant]
     Active Substance: GABAPENTIN
  22. PROGESTERONE [Concomitant]
     Active Substance: PROGESTERONE
  23. TRELEGY ELLIPTA [Concomitant]
     Active Substance: FLUTICASONE FUROATE\UMECLIDINIUM BROMIDE\VILANTEROL TRIFENATATE
  24. MONTELUKAST SODIUM [Concomitant]
     Active Substance: MONTELUKAST SODIUM
  25. SPIRONOLACTONE [Concomitant]
     Active Substance: SPIRONOLACTONE
  26. DILTIAZEM [Concomitant]
     Active Substance: DILTIAZEM
  27. LOSARTAN POTASSIUM [Concomitant]
     Active Substance: LOSARTAN POTASSIUM
  28. POTASSIUM CHLORIDE [Concomitant]
     Active Substance: POTASSIUM CHLORIDE
  29. PANTOPRAZOLE SODIUM [Concomitant]
     Active Substance: PANTOPRAZOLE SODIUM
  30. NUCALA [Concomitant]
     Active Substance: MEPOLIZUMAB
  31. EPINEPHRINE [Concomitant]
     Active Substance: EPINEPHRINE
  32. ESTRADIOL TESFAST [Concomitant]
  33. COENZYME Q10 [Concomitant]
     Active Substance: DIETARY SUPPLEMENT\UBIDECARENONE
  34. ZYRTEC [Concomitant]
     Active Substance: CETIRIZINE HYDROCHLORIDE

REACTIONS (2)
  - Asthma [Unknown]
  - Drug ineffective [Unknown]

NARRATIVE: CASE EVENT DATE: 20230701
